FAERS Safety Report 6834192-1 (Version None)
Quarter: 2010Q3

REPORT INFORMATION
  Report Type: 
  Country: None (occurrence: None)
  Receive Date: 20100712
  Receipt Date: 20070604
  Transmission Date: 20110219
  Serious: No
  Sender: FDA-Public Use
  Company Number: US-PFIZER INC-2007034144

PATIENT
  Sex: Female
  Weight: 43.09 kg

DRUGS (4)
  1. CHANTIX [Suspect]
     Indication: SMOKING CESSATION THERAPY
     Route: 048
     Dates: start: 20070403
  2. LICORICE [Suspect]
     Indication: FOOD CRAVING
     Dates: start: 20070401
  3. LIPITOR [Concomitant]
  4. FOSAMAX [Concomitant]

REACTIONS (4)
  - ERUCTATION [None]
  - FAECES DISCOLOURED [None]
  - NAUSEA [None]
  - VOMITING [None]
